FAERS Safety Report 4375040-1 (Version None)
Quarter: 2004Q2

REPORT INFORMATION
  Report Type: 
  Country: None (occurrence: None)
  Receive Date: 20040607
  Receipt Date: 20040223
  Transmission Date: 20050107
  Serious: Yes (Other)
  Sender: FDA-Public Use
  Company Number: 342272

PATIENT
  Sex: 0

DRUGS (2)
  1. ACCUTANE [Suspect]
     Dosage: UNK
     Route: 065
     Dates: end: 20030423
  2. ORTHO TRI-CYCLEN [Concomitant]

REACTIONS (2)
  - NO ADVERSE EFFECT [None]
  - NORMAL NEWBORN [None]
